FAERS Safety Report 9102424 (Version 1)
Quarter: 2013Q1

REPORT INFORMATION
  Report Type: Spontaneous
  Country: US (occurrence: US)
  Receive Date: 20130219
  Receipt Date: 20130219
  Transmission Date: 20140127
  Serious: Yes (Other)
  Sender: FDA-Public Use
  Company Number: US-JNJFOC-20130203104

PATIENT
  Sex: Male
  Weight: 68.04 kg

DRUGS (4)
  1. HALDOL DECANOATE [Suspect]
     Indication: PRODUCT USED FOR UNKNOWN INDICATION
     Route: 030
  2. GEODON [Concomitant]
     Indication: BIPOLAR DISORDER
     Route: 048
     Dates: start: 20110227
  3. DEPAKOTE ER [Concomitant]
     Indication: PRODUCT USED FOR UNKNOWN INDICATION
     Route: 065
  4. CLONAZEPAM [Concomitant]
     Indication: PRODUCT USED FOR UNKNOWN INDICATION
     Route: 048

REACTIONS (4)
  - Delusion [Unknown]
  - Self-medication [Unknown]
  - Tremor [Unknown]
  - Treatment noncompliance [Unknown]
